FAERS Safety Report 7206423-X (Version None)
Quarter: 2011Q1

REPORT INFORMATION
  Report Type: 
  Country: None (occurrence: None)
  Receive Date: 20110103
  Receipt Date: 20101221
  Transmission Date: 20110831
  Serious: Yes (Hospitalization)
  Sender: FDA-Public Use
  Company Number: US-ELI_LILLY_AND_COMPANY-US201012005773

PATIENT
  Sex: Female

DRUGS (9)
  1. FORTEO [Suspect]
     Indication: OSTEOPOROSIS
     Dosage: 20 UG, DAILY (1/D)
  2. FENTANYL [Concomitant]
     Route: 062
  3. MORPHINE [Concomitant]
  4. SINGULAIR [Concomitant]
  5. COLACE [Concomitant]
  6. GABAPENTIN [Concomitant]
  7. ASPIRIN [Concomitant]
  8. VITAMIN D [Concomitant]
  9. HYDROCODONE [Concomitant]

REACTIONS (1)
  - HEART RATE IRREGULAR [None]
